FAERS Safety Report 25700022 (Version 1)
Quarter: 2025Q3

REPORT INFORMATION
  Report Type: Spontaneous
  Country: US (occurrence: None)
  Receive Date: 20250818
  Receipt Date: 20250818
  Transmission Date: 20251021
  Serious: Yes (Life-Threatening, Hospitalization)
  Sender: FDA-CTU
  Company Number: None

PATIENT
  Age: 63 Year
  Sex: Male

DRUGS (5)
  1. APIXABAN [Suspect]
     Active Substance: APIXABAN
  2. ASPIRIN [Suspect]
     Active Substance: ASPIRIN
  3. APIXABAN [Concomitant]
     Active Substance: APIXABAN
  4. ASPIRIN [Concomitant]
     Active Substance: ASPIRIN
  5. CLOPIDOGREL [Concomitant]
     Active Substance: CLOPIDOGREL BISULFATE

REACTIONS (6)
  - Mental status changes [None]
  - Asthenia [None]
  - Melaena [None]
  - Haemoglobin decreased [None]
  - Chest X-ray abnormal [None]
  - Fluid retention [None]

NARRATIVE: CASE EVENT DATE: 20240918
